FAERS Safety Report 8102326-7 (Version None)
Quarter: 2012Q1

REPORT INFORMATION
  Report Type: 
  Country: None (occurrence: None)
  Receive Date: 20120201
  Receipt Date: 20120127
  Transmission Date: 20120608
  Serious: Yes (Hospitalization, Other)
  Sender: FDA-Public Use
  Company Number: US-PFIZER INC-2011303942

PATIENT
  Sex: Male
  Weight: 78.912 kg

DRUGS (3)
  1. CELEBREX [Suspect]
     Indication: SCIATICA
     Dosage: 200 MG, 1X/DAY
     Route: 048
     Dates: start: 20111115, end: 20111124
  2. ACETYLSALICYLIC ACID [Concomitant]
     Dosage: UNK
  3. ACETAMINOPHEN AND HYDROCODONE BITARTRATE [Concomitant]
     Dosage: 5/325 MG, UNK

REACTIONS (2)
  - CEREBROVASCULAR ACCIDENT [None]
  - VISUAL ACUITY REDUCED [None]
